FAERS Safety Report 23865280 (Version 1)
Quarter: 2024Q2

REPORT INFORMATION
  Report Type: Report from Study
  Country: CA (occurrence: CA)
  Receive Date: 20240517
  Receipt Date: 20240517
  Transmission Date: 20240716
  Serious: Yes (Other)
  Sender: FDA-Public Use
  Company Number: CA-GLAXOSMITHKLINE-CA2023147846

PATIENT

DRUGS (1)
  1. MEPOLIZUMAB [Suspect]
     Active Substance: MEPOLIZUMAB
     Indication: Asthma
     Dosage: 100 MG, Q4W
     Route: 058
     Dates: start: 20230530

REACTIONS (7)
  - Pulmonary congestion [Unknown]
  - COVID-19 [Unknown]
  - Pain [Unknown]
  - Cerebral congestion [Unknown]
  - Chest discomfort [Unknown]
  - Brain fog [Unknown]
  - Hernia [Unknown]
